FAERS Safety Report 19782187 (Version 2)
Quarter: 2021Q3

REPORT INFORMATION
  Report Type: Spontaneous
  Country: CA (occurrence: CA)
  Receive Date: 20210902
  Receipt Date: 20210913
  Transmission Date: 20211014
  Serious: Yes (Other)
  Sender: FDA-Public Use
  Company Number: CA-TEVA-2021-CA-1946988

PATIENT
  Age: 46 Year
  Sex: Male

DRUGS (6)
  1. FLECAINIDE [Suspect]
     Active Substance: FLECAINIDE
     Indication: ARRHYTHMIA SUPRAVENTRICULAR
     Dosage: 150 MILLIGRAM DAILY;
     Route: 065
  2. DILTIAZEM. [Suspect]
     Active Substance: DILTIAZEM
     Indication: ARRHYTHMIA SUPRAVENTRICULAR
     Dosage: 120 MILLIGRAM DAILY;
     Route: 065
  3. METOPROLOL. [Suspect]
     Active Substance: METOPROLOL
     Indication: SUPRAVENTRICULAR EXTRASYSTOLES
  4. METOPROLOL. [Suspect]
     Active Substance: METOPROLOL
     Indication: ATRIAL TACHYCARDIA
     Route: 065
  5. SOTALOL. [Suspect]
     Active Substance: SOTALOL
     Indication: ATRIAL TACHYCARDIA
     Route: 065
  6. SOTALOL. [Suspect]
     Active Substance: SOTALOL
     Indication: SUPRAVENTRICULAR EXTRASYSTOLES

REACTIONS (3)
  - Drug ineffective [Unknown]
  - Unmasking of previously unidentified disease [Recovered/Resolved]
  - Brugada syndrome [Recovered/Resolved]
